FAERS Safety Report 9443885 (Version 5)
Quarter: 2014Q3

REPORT INFORMATION
  Report Type: Report from Study
  Country: GB (occurrence: GB)
  Receive Date: 20130806
  Receipt Date: 20140722
  Transmission Date: 20150326
  Serious: Yes (Death, Hospitalization, Other)
  Sender: FDA-Public Use
  Company Number: GB-ROCHE-1257441

PATIENT
  Age: 92 Year
  Sex: Female

DRUGS (4)
  1. BRINZOLAMIDE [Concomitant]
     Active Substance: BRINZOLAMIDE
     Indication: GLAUCOMA
  2. LUCENTIS [Suspect]
     Active Substance: RANIBIZUMAB
     Route: 065
     Dates: start: 20120316
  3. LUCENTIS [Suspect]
     Active Substance: RANIBIZUMAB
     Indication: AGE-RELATED MACULAR DEGENERATION
     Route: 050
     Dates: start: 20110415
  4. LATANOPROST. [Concomitant]
     Active Substance: LATANOPROST
     Indication: GLAUCOMA

REACTIONS (8)
  - Metastatic neoplasm [Fatal]
  - Dyspnoea [Unknown]
  - Lymphoma [Unknown]
  - Dysphagia [Unknown]
  - Pulmonary oedema [Fatal]
  - Hepatic cyst [Unknown]
  - Atrial fibrillation [Fatal]
  - Renal failure chronic [Fatal]

NARRATIVE: CASE EVENT DATE: 20130712
